FAERS Safety Report 12092286 (Version 1)
Quarter: 2016Q1

REPORT INFORMATION
  Report Type: Spontaneous
  Country: US (occurrence: None)
  Receive Date: 20160217
  Receipt Date: 20160217
  Transmission Date: 20160526
  Serious: No
  Sender: FDA-Public Use
  Company Number: None

PATIENT
  Sex: Female
  Weight: 75.3 kg

DRUGS (1)
  1. FORTEO [Suspect]
     Active Substance: TERIPARATIDE
     Dosage: 600MCG, 20 MCG, SUBCUTANEOUSLY
     Route: 058

REACTIONS (5)
  - Myalgia [None]
  - Drug hypersensitivity [None]
  - Tremor [None]
  - Dyskinesia [None]
  - Condition aggravated [None]
